FAERS Safety Report 9130263 (Version 3)
Quarter: 2014Q2

REPORT INFORMATION
  Report Type: Spontaneous
  Country: JP (occurrence: JP)
  Receive Date: 20130228
  Receipt Date: 20140203
  Transmission Date: 20141212
  Serious: Yes (Other)
  Sender: FDA-Public Use
  Company Number: JP-ALLERGAN-1302733US

PATIENT
  Age: 63 Year
  Sex: Female

DRUGS (1)
  1. BOTOX [Suspect]
     Indication: MUSCLE SPASMS
     Dosage: 250 UNITS, SINGLE
     Route: 030
     Dates: start: 20121211, end: 20121211

REACTIONS (2)
  - Femoral neck fracture [Unknown]
  - Fall [Unknown]
